FAERS Safety Report 5100381-X (Version None)
Quarter: 2006Q3

REPORT INFORMATION
  Report Type: 
  Country: None (occurrence: None)
  Receive Date: 20060731
  Receipt Date: 20060531
  Transmission Date: 20061208
  Serious: No
  Sender: FDA-Public Use
  Company Number: 2006PV014757

PATIENT
  Age: 63 Year
  Sex: Female
  Weight: 85.2762 kg

DRUGS (6)
  1. BYETTA [Suspect]
     Indication: DIABETES MELLITUS NON-INSULIN-DEPENDENT
     Dosage: 5 MCG; BID; SC
     Route: 058
     Dates: start: 20060530
  2. GLUCOVANCE [Concomitant]
  3. INSULIN [Concomitant]
  4. DILACOR XR [Concomitant]
  5. LOTENSIN [Concomitant]
  6. PAXIL [Concomitant]

REACTIONS (2)
  - BLOOD GLUCOSE INCREASED [None]
  - CONFUSIONAL STATE [None]
